FAERS Safety Report 14088421 (Version 1)
Quarter: 2017Q4

REPORT INFORMATION
  Report Type: Spontaneous
  Country: EG (occurrence: EG)
  Receive Date: 20171013
  Receipt Date: 20171013
  Transmission Date: 20180321
  Serious: Yes (Life-Threatening, Other)
  Sender: FDA-Public Use
  Company Number: EG-US WORLDMEDS, LLC-USW201709-001363

PATIENT
  Sex: Male

DRUGS (1)
  1. ZELNORM [Suspect]
     Active Substance: TEGASEROD MALEATE
     Indication: CONSTIPATION
     Dates: start: 2005, end: 2007

REACTIONS (9)
  - Dizziness [Unknown]
  - Myocardial infarction [Not Recovered/Not Resolved]
  - Angina pectoris [Not Recovered/Not Resolved]
  - Cardiac disorder [Unknown]
  - Gastrointestinal disorder [Unknown]
  - Blood pressure fluctuation [Not Recovered/Not Resolved]
  - Palpitations [Unknown]
  - Hypertension [Unknown]
  - Feeling abnormal [Unknown]

NARRATIVE: CASE EVENT DATE: 2007
